FAERS Safety Report 16896338 (Version 1)
Quarter: 2019Q4

REPORT INFORMATION
  Report Type: Spontaneous
  Country: ES (occurrence: ES)
  Receive Date: 20191008
  Receipt Date: 20191008
  Transmission Date: 20200122
  Serious: Yes (Death, Hospitalization)
  Sender: FDA-Public Use
  Company Number: ES-PFIZER INC-2019433693

PATIENT
  Age: 68 Year
  Sex: Female

DRUGS (4)
  1. RITUXIMAB. [Concomitant]
     Active Substance: RITUXIMAB
     Indication: LYMPHOPROLIFERATIVE DISORDER
     Dosage: UNK
     Route: 042
     Dates: start: 20190716, end: 20190716
  2. SIROLIMUS. [Suspect]
     Active Substance: SIROLIMUS
     Indication: LUNG TRANSPLANT
     Dosage: 1.5 MG, 1X/DAY
     Route: 048
     Dates: start: 20190709, end: 20190724
  3. FOSFOMYCIN CALCIUM [Concomitant]
     Active Substance: FOSFOMYCIN CALCIUM
     Indication: URINARY TRACT INFECTION
     Dosage: 2 G, 1X/DAY
     Route: 048
     Dates: start: 20190718, end: 20190719
  4. PROGRAF [Concomitant]
     Active Substance: TACROLIMUS
     Indication: LYMPHOPROLIFERATIVE DISORDER
     Dosage: UNK
     Route: 048
     Dates: start: 20181001, end: 20190709

REACTIONS (3)
  - Off label use [Unknown]
  - Product use in unapproved indication [Unknown]
  - Alveolar proteinosis [Fatal]

NARRATIVE: CASE EVENT DATE: 20190720
